FAERS Safety Report 6029974-2 (Version None)
Quarter: 2009Q1

REPORT INFORMATION
  Report Type: 
  Country: None (occurrence: None)
  Receive Date: 20090107
  Receipt Date: 20081231
  Transmission Date: 20090719
  Serious: Yes (Hospitalization)
  Sender: FDA-Public Use
  Company Number: B0547791A

PATIENT
  Age: 27 Year
  Sex: Female

DRUGS (2)
  1. CEFUROXIME [Suspect]
     Indication: DRUG USE FOR UNKNOWN INDICATION
     Route: 065
  2. FRAXIPARINE [Suspect]
     Indication: DEEP VEIN THROMBOSIS
     Route: 065

REACTIONS (6)
  - DRUG EXPOSURE DURING PREGNANCY [None]
  - DYSPNOEA [None]
  - HYPERSENSITIVITY [None]
  - PRURITUS [None]
  - RASH [None]
  - TYPE IV HYPERSENSITIVITY REACTION [None]
